FAERS Safety Report 9746788 (Version 1)
Quarter: 2013Q4

REPORT INFORMATION
  Report Type: Spontaneous
  Country: SE (occurrence: SE)
  Receive Date: 20131211
  Receipt Date: 20131211
  Transmission Date: 20140711
  Serious: Yes (Hospitalization)
  Sender: FDA-Public Use
  Company Number: PHHY2013SE141803

PATIENT
  Age: 17 Year
  Sex: Male

DRUGS (3)
  1. OLANZAPINE [Suspect]
     Indication: BIPOLAR DISORDER
     Dosage: 10 MG, DAY
  2. OLANZAPINE [Suspect]
     Dosage: 20 MG, DAY
  3. OXCARBAZEPINE [Concomitant]
     Dosage: 600 MG, UNK

REACTIONS (2)
  - Rhabdomyolysis [Not Recovered/Not Resolved]
  - Renal failure acute [Not Recovered/Not Resolved]
